FAERS Safety Report 9412051 (Version 3)
Quarter: 2013Q3

REPORT INFORMATION
  Report Type: Spontaneous
  Country: US (occurrence: US)
  Receive Date: 20130722
  Receipt Date: 20130806
  Transmission Date: 20140515
  Serious: Yes (Hospitalization, Other)
  Sender: FDA-Public Use
  Company Number: US-009507513-1307USA000288

PATIENT
  Sex: Male

DRUGS (1)
  1. NASONEX [Suspect]
     Dosage: ONE SPRAY IN EACH NOSTRIL ONCE A DAY
     Route: 045
     Dates: start: 20130619

REACTIONS (4)
  - Neoplasm malignant [Unknown]
  - Pneumonia [Unknown]
  - Drug dose omission [Unknown]
  - Product quality issue [Unknown]
